FAERS Safety Report 14510577 (Version 1)
Quarter: 2018Q1

REPORT INFORMATION
  Report Type: Spontaneous
  Country: CN (occurrence: CN)
  Receive Date: 20180209
  Receipt Date: 20180209
  Transmission Date: 20180509
  Serious: Yes (Hospitalization)
  Sender: FDA-Public Use
  Company Number: CN-NAPPMUNDI-GBR-2018-0052916

PATIENT
  Age: 51 Year
  Sex: Male

DRUGS (6)
  1. OXYCODONE HYDROCHLORIDE. [Suspect]
     Active Substance: OXYCODONE HYDROCHLORIDE
     Indication: PROCTALGIA
     Dosage: 320 MG, Q12H
     Route: 048
     Dates: start: 20150412
  2. OXYCODONE HYDROCHLORIDE. [Suspect]
     Active Substance: OXYCODONE HYDROCHLORIDE
     Dosage: UNK
     Route: 048
     Dates: start: 201502
  3. OXYCODONE HYDROCHLORIDE. [Suspect]
     Active Substance: OXYCODONE HYDROCHLORIDE
     Indication: CANCER PAIN
     Dosage: 240 MG, Q12H
     Route: 048
     Dates: start: 20150428
  4. OXYCODONE HYDROCHLORIDE. [Suspect]
     Active Substance: OXYCODONE HYDROCHLORIDE
     Indication: ARTHRALGIA
     Dosage: 640 MG, DAILY, ONCE
     Route: 048
     Dates: start: 20150427
  5. GABAPENTIN. [Concomitant]
     Active Substance: GABAPENTIN
     Dosage: 0.3 G, TID
     Route: 065
  6. OLANZAPINE. [Concomitant]
     Active Substance: OLANZAPINE
     Dosage: 5 MG, NOCTE
     Route: 065

REACTIONS (11)
  - Loss of consciousness [Recovered/Resolved]
  - Incorrect dose administered [Unknown]
  - Dizziness [Recovered/Resolved]
  - Delirium [Recovered/Resolved]
  - Unresponsive to stimuli [Unknown]
  - Productive cough [Unknown]
  - Sedation [Recovered/Resolved]
  - Accidental overdose [Unknown]
  - Respiratory depression [Recovered/Resolved]
  - Constipation [Unknown]
  - Wheezing [Unknown]
